FAERS Safety Report 10286270 (Version 2)
Quarter: 2014Q3

REPORT INFORMATION
  Report Type: Report from Study
  Country: US (occurrence: None)
  Receive Date: 20140703
  Receipt Date: 20140714
  Transmission Date: 20150326
  Serious: Yes (Hospitalization, Other)
  Sender: FDA-Public Use
  Company Number: 2014MPI00758

PATIENT
  Age: 29 Year
  Sex: Female
  Weight: 55.2 kg

DRUGS (4)
  1. VINBLASTINE (VINBLASTINE SULFATE) INJECTION [Suspect]
     Active Substance: VINBLASTINE
     Indication: HODGKIN^S DISEASE
     Dosage: 6-5-2014
  2. DACARBAZINE (DACARBAZINE) INJECTION [Suspect]
     Active Substance: DACARBAZINE
     Indication: HODGKIN^S DISEASE
     Dosage: 566MG, IV,6/5/2014.
  3. BRENTUXIMAB VEDOTIN [Suspect]
     Active Substance: BRENTUXIMAB VEDOTIN
     Indication: HODGKIN^S DISEASE
     Dosage: 64 MG.,IV.
  4. DOXORUBICIN (DOXORUBICIN) INJECTION [Suspect]
     Active Substance: DOXORUBICIN
     Indication: HODGKIN^S DISEASE
     Dosage: IV.6/5/2014

REACTIONS (13)
  - Mediastinal mass [None]
  - Tooth infection [None]
  - Heart rate increased [None]
  - Pericoronitis [None]
  - Weight decreased [None]
  - Blood sodium decreased [None]
  - Tachycardia [None]
  - Asthma [None]
  - Haematocrit decreased [None]
  - Red blood cell count decreased [None]
  - Lymphadenopathy [None]
  - Febrile neutropenia [None]
  - Haemoglobin decreased [None]

NARRATIVE: CASE EVENT DATE: 20140618
